FAERS Safety Report 6313897-5 (Version None)
Quarter: 2009Q3

REPORT INFORMATION
  Report Type: 
  Country: None (occurrence: None)
  Receive Date: 20090813
  Receipt Date: 20090804
  Transmission Date: 20100115
  Serious: Yes (Disabling, Other)
  Sender: FDA-Public Use
  Company Number: 2009008412

PATIENT
  Age: 35 Year
  Sex: Male

DRUGS (4)
  1. TRISENOX [Suspect]
     Indication: ACUTE PROMYELOCYTIC LEUKAEMIA
     Dosage: (10 MG),INTRAVENOUS (NOT OTHERWISE SPECIFIED)
     Route: 040
     Dates: start: 20090518, end: 20090611
  2. CYTARABINE [Suspect]
     Indication: LEUKAEMIC INFILTRATION EXTRAMEDULLARY
     Dosage: 40 MG TOTAL DAILY DOSE, INTRATHECAL
     Route: 037
     Dates: start: 20090221, end: 20090509
  3. METHOTREXATE [Suspect]
     Indication: LEUKAEMIC INFILTRATION EXTRAMEDULLARY
     Dosage: 15 MG TOTAL DAILY DOSE, INTRATHECAL
     Route: 037
     Dates: start: 20090221, end: 20090516
  4. PREDNISOLONE SODIUM SUCCINATE INJ [Suspect]
     Indication: LEUKAEMIC INFILTRATION EXTRAMEDULLARY
     Dosage: 20 MG TOTAL DAILY  DOSE, INTRATHECAL
     Route: 037
     Dates: start: 20090221, end: 20090516

REACTIONS (12)
  - CHEST DISCOMFORT [None]
  - DYSSTASIA [None]
  - HYPOAESTHESIA [None]
  - IRRITABILITY [None]
  - MONOPLEGIA [None]
  - NERVOUS SYSTEM DISORDER [None]
  - NEUTROPHIL COUNT DECREASED [None]
  - PYRAMIDAL TRACT SYNDROME [None]
  - SENSORY DISTURBANCE [None]
  - SPINAL CORD DISORDER [None]
  - URINE ARSENIC INCREASED [None]
  - WHITE BLOOD CELL COUNT DECREASED [None]
